FAERS Safety Report 4376486-8 (Version None)
Quarter: 2004Q2

REPORT INFORMATION
  Report Type: 
  Country: None (occurrence: None)
  Receive Date: 20040608
  Receipt Date: 20040524
  Transmission Date: 20050107
  Serious: Yes (Death, Hospitalization)
  Sender: FDA-Public Use
  Company Number: 198744

PATIENT
  Age: 59 Year
  Sex: Female
  Weight: 45.3597 kg

DRUGS (5)
  1. AVONEX [Suspect]
     Indication: MULTIPLE SCLEROSIS
     Dosage: 30 MCG QW IM
     Route: 030
     Dates: start: 20040520, end: 20040520
  2. SYNTHROID [Concomitant]
  3. OXYCONTIN [Concomitant]
  4. BEXTRA [Concomitant]
  5. ANTITWITCHING MEDICATION (NOS) [Concomitant]

REACTIONS (1)
  - COMA [None]
